FAERS Safety Report 7200193-7 (Version None)
Quarter: 2010Q4

REPORT INFORMATION
  Report Type: 
  Country: None (occurrence: None)
  Receive Date: 20101228
  Receipt Date: 20101216
  Transmission Date: 20110411
  Serious: Yes (Hospitalization, Other)
  Sender: FDA-Public Use
  Company Number: DE-PFIZER INC-2010133730

PATIENT
  Age: 49 Year
  Sex: Male
  Weight: 75 kg

DRUGS (14)
  1. LYRICA [Suspect]
     Indication: GENERALISED ANXIETY DISORDER
     Dosage: 150 MG, 2X/DAY
     Route: 048
     Dates: start: 20100301, end: 20101001
  2. METOPROLOL SUCCINATE [Concomitant]
     Dosage: 23.75 MG, 2X/DAY
  3. RAMIPRIL [Concomitant]
     Dosage: 1.25 MG, 1X/DAY
  4. EPLERENONE [Concomitant]
     Dosage: 50 MG, 1X/DAY
  5. TORASEMIDE [Concomitant]
     Dosage: 10 MG, 2X/DAY
  6. NOVODIGAL [Concomitant]
     Dosage: 0.2 MG, 1X/DAY
  7. AMIODARONE [Concomitant]
     Dosage: 200 MG, 1X/DAY
  8. SIMVASTATIN [Concomitant]
     Dosage: 40 MG, 1X/DAY
  9. MARCUMAR [Concomitant]
     Dosage: UNK
  10. CLEXANE [Concomitant]
     Dosage: 80 MG, 2X/DAY
  11. OMEPRAZOLE [Concomitant]
     Dosage: 20 MG, 1X/DAY
  12. VITAMIN D3 [Concomitant]
     Dosage: UNK
  13. ALPRAZOLAM [Concomitant]
     Dosage: 0.25 MG, 2X/DAY
  14. DOXEPIN [Concomitant]
     Dosage: 12.5 MG, 1X/DAY

REACTIONS (5)
  - ARRHYTHMIA [None]
  - CARDIAC FAILURE [None]
  - CARDIOMYOPATHY [None]
  - DIASTOLIC DYSFUNCTION [None]
  - EJECTION FRACTION DECREASED [None]
